FAERS Safety Report 24932459 (Version 1)
Quarter: 2025Q1

REPORT INFORMATION
  Report Type: Report from Study
  Country: US (occurrence: US)
  Receive Date: 20250205
  Receipt Date: 20250205
  Transmission Date: 20250409
  Serious: No
  Sender: EXELIXIS
  Company Number: US-EXELIXIS-CABO-24080833

PATIENT
  Sex: Male

DRUGS (5)
  1. CABOMETYX [Suspect]
     Active Substance: CABOZANTINIB S-MALATE
     Indication: Renal cell carcinoma
     Dosage: 60 MG, QD
     Dates: start: 20240724, end: 20240824
  2. CABOMETYX [Suspect]
     Active Substance: CABOZANTINIB S-MALATE
     Indication: Metastases to bone
  3. CABOMETYX [Suspect]
     Active Substance: CABOZANTINIB S-MALATE
     Indication: Metastases to liver
  4. CABOMETYX [Suspect]
     Active Substance: CABOZANTINIB S-MALATE
     Indication: Metastases to lung
  5. FELODIPINE [Concomitant]
     Active Substance: FELODIPINE

REACTIONS (9)
  - Dysphagia [Unknown]
  - Blood pressure increased [Unknown]
  - Stomatitis [Unknown]
  - Diarrhoea [Unknown]
  - Blister [Unknown]
  - Toothache [Unknown]
  - Hypogeusia [Unknown]
  - Speech disorder [Unknown]
  - Dry mouth [Unknown]
